FAERS Safety Report 6762445-4 (Version None)
Quarter: 2010Q2

REPORT INFORMATION
  Report Type: 
  Country: None (occurrence: None)
  Receive Date: 20100609
  Receipt Date: 20100607
  Transmission Date: 20101027
  Serious: Yes (Hospitalization)
  Sender: FDA-Public Use
  Company Number: US-GILEAD-2010-0029603

PATIENT
  Sex: Male
  Weight: 59.928 kg

DRUGS (13)
  1. LETAIRIS [Suspect]
     Indication: PULMONARY ARTERIAL HYPERTENSION
     Route: 048
     Dates: start: 20081208
  2. ADCIRCA [Concomitant]
  3. REMODULIN [Concomitant]
  4. OXYGEN [Concomitant]
  5. LASIX [Concomitant]
  6. ALLEGRA [Concomitant]
  7. FAMOTIDINE [Concomitant]
  8. GABAPENTIN [Concomitant]
  9. LIDODERM [Concomitant]
  10. PLO [Concomitant]
  11. MAG-OX [Concomitant]
  12. POTASSIUM [Concomitant]
  13. SODIUM CHLORIDE [Concomitant]

REACTIONS (3)
  - HYPERCAPNIA [None]
  - RESPIRATORY FAILURE [None]
  - SLEEP APNOEA SYNDROME [None]
